FAERS Safety Report 17939111 (Version 1)
Quarter: 2020Q2

REPORT INFORMATION
  Report Type: Spontaneous
  Country: GB (occurrence: GB)
  Receive Date: 20200625
  Receipt Date: 20200625
  Transmission Date: 20200714
  Serious: Yes (Death, Hospitalization)
  Sender: FDA-Public Use
  Company Number: GB-009507513-2006GBR008243

PATIENT
  Age: 92 Year
  Sex: Male

DRUGS (25)
  1. CASSIA [Concomitant]
     Dosage: 2 DOSAGE FORM, QD AT NIGHT
  2. DOCUSATE SODIUM. [Concomitant]
     Active Substance: DOCUSATE SODIUM
     Dosage: 400 MILLIGRAM, QD
  3. OXYNORM [Concomitant]
     Active Substance: OXYCODONE HYDROCHLORIDE
  4. SODIUM BICARBONATE. [Concomitant]
     Active Substance: SODIUM BICARBONATE
     Dosage: 1500 MILLIGRAM, QD
  5. POLYETHYLENE GLYCOL [Concomitant]
     Active Substance: POLYETHYLENE GLYCOLS
     Dosage: TWICE DAILY
  6. DEXTROSE. [Concomitant]
     Active Substance: DEXTROSE
     Indication: HYPOGLYCAEMIA
     Dosage: 100ML OVER 15MINS
  7. OXYCODONE [Concomitant]
     Active Substance: OXYCODONE
     Dosage: 1.25-2.5MG
     Route: 058
  8. NUTRITIONAL SUPPLEMENTS [Concomitant]
     Active Substance: DIETARY SUPPLEMENT
     Dosage: 1.00 DOSAGE FORM, QD LUNCH
  9. ENOXAPARIN SODIUM. [Concomitant]
     Active Substance: ENOXAPARIN SODIUM
     Dosage: HELD AS GI BLEED
     Route: 058
  10. ACETAMINOPHEN. [Concomitant]
     Active Substance: ACETAMINOPHEN
  11. DONEPEZIL. [Concomitant]
     Active Substance: DONEPEZIL
     Dosage: QUERY CAUSING HER RETENTION
  12. ONDANSETRON [Concomitant]
     Active Substance: ONDANSETRON
     Dosage: 4 MILLIGRAM, PRN
  13. PRONTODERM GEL [Concomitant]
     Dosage: 3 DOSAGE FORM, QD
     Route: 045
  14. ADCAL-D3 [Concomitant]
     Active Substance: CALCIUM CARBONATE\CHOLECALCIFEROL
     Dosage: DOESN^T TAKE
  15. SODIUM PHOSPHATE, DIBASIC [Concomitant]
     Active Substance: SODIUM PHOSPHATE, DIBASIC
     Dosage: UNK UNK, PRN
  16. CODEINE [Concomitant]
     Active Substance: CODEINE
     Dosage: 30.00 MILLIGRAM, FOUR TIMES DAILY, PRN
  17. PRONTODERM FOAM [Concomitant]
     Dosage: 1 DOSAGE FORM, QD
  18. ALENDRONATE SODIUM. [Suspect]
     Active Substance: ALENDRONATE SODIUM
     Dosage: 70 MG, QW (SATURDAYS)
     Route: 048
  19. LORAZEPAM. [Concomitant]
     Active Substance: LORAZEPAM
     Indication: AGITATION
     Dosage: 0.5-1MG ORALLY OR SUBLINGUALLY WHEN REQUIRED
  20. GLYCERIN. [Concomitant]
     Active Substance: GLYCERIN
     Dosage: 4 GRAM, PRN
     Route: 054
  21. CITALOPRAM [Concomitant]
     Active Substance: CITALOPRAM HYDROBROMIDE
     Dosage: STOPPED
  22. NUTRITIONAL SUPPLEMENTS [Concomitant]
     Active Substance: DIETARY SUPPLEMENT
     Dosage: WITH MEALS
  23. OXYCONTIN [Concomitant]
     Active Substance: OXYCODONE HYDROCHLORIDE
     Dosage: CHANGED TO OXYNORM AT HOSPITAL
  24. LACTULOSE. [Concomitant]
     Active Substance: LACTULOSE
     Dosage: 30 MILLILITER, QD
  25. LANSOPRAZOLE. [Concomitant]
     Active Substance: LANSOPRAZOLE
     Dosage: REDUCED TO ONCE DAILY ON WARD

REACTIONS (1)
  - Gastrointestinal haemorrhage [Fatal]

NARRATIVE: CASE EVENT DATE: 20191120
